FAERS Safety Report 4817407-0 (Version None)
Quarter: 2005Q4

REPORT INFORMATION
  Report Type: 
  Country: None (occurrence: None)
  Receive Date: 20051101
  Receipt Date: 20051024
  Transmission Date: 20060501
  Serious: Yes (Hospitalization)
  Sender: FDA-Public Use
  Company Number: FR-AVENTIS-200513514FR

PATIENT
  Age: 77 Year
  Sex: Male
  Weight: 76 kg

DRUGS (6)
  1. GLYBURIDE [Suspect]
     Indication: DIABETES MELLITUS
     Route: 048
  2. GLUCOPHAGE [Suspect]
     Indication: DIABETES MELLITUS
     Route: 048
  3. TANAKAN [Concomitant]
     Route: 048
  4. VASTAREL [Concomitant]
     Route: 048
  5. JOSIR [Concomitant]
     Route: 048
  6. TAHOR [Concomitant]
     Route: 048

REACTIONS (4)
  - CEREBRAL ATROPHY [None]
  - HYPOGLYCAEMIC SEIZURE [None]
  - MEMORY IMPAIRMENT [None]
  - RENAL FAILURE [None]
